FAERS Safety Report 19795424 (Version 1)
Quarter: 2021Q3

REPORT INFORMATION
  Report Type: Spontaneous
  Country: US (occurrence: US)
  Receive Date: 20210902
  Receipt Date: 20210902
  Transmission Date: 20211014
  Serious: Yes (Hospitalization)
  Sender: FDA-Public Use
  Company Number: None

PATIENT
  Sex: Male
  Weight: 71.1 kg

DRUGS (8)
  1. DEXAMETHASONE. [Concomitant]
     Active Substance: DEXAMETHASONE
  2. METHOTREXATE. [Concomitant]
     Active Substance: METHOTREXATE
  3. DOXORUBICIN HYDROCHLORIDE. [Concomitant]
     Active Substance: DOXORUBICIN HYDROCHLORIDE
  4. THIOGUANINE  (6?TG) [Concomitant]
     Active Substance: THIOGUANINE ANHYDROUS
  5. CYTARABINE. [Suspect]
     Active Substance: CYTARABINE
  6. CYTARABINE. [Concomitant]
     Active Substance: CYTARABINE
  7. NO DRUG NAME [Concomitant]
  8. VINCRISTINE SULFATE. [Concomitant]
     Active Substance: VINCRISTINE SULFATE

REACTIONS (7)
  - Device related infection [None]
  - Nausea [None]
  - Pancytopenia [None]
  - Vomiting [None]
  - Bacteraemia [None]
  - Body temperature increased [None]
  - Chills [None]

NARRATIVE: CASE EVENT DATE: 20210819
